FAERS Safety Report 4702326-0 (Version None)
Quarter: 2005Q2

REPORT INFORMATION
  Report Type: 
  Country: None (occurrence: None)
  Receive Date: 20050623
  Receipt Date: 20050607
  Transmission Date: 20051028
  Serious: Yes (Hospitalization)
  Sender: FDA-Public Use
  Company Number: 2005BH000198

PATIENT

DRUGS (1)
  1. TISSEEL VH KIT [Suspect]

REACTIONS (1)
  - INTESTINAL OBSTRUCTION [None]
